FAERS Safety Report 9514277 (Version 1)
Quarter: 2013Q3

REPORT INFORMATION
  Report Type: Spontaneous
  Country: US (occurrence: US)
  Receive Date: 20130910
  Receipt Date: 20130910
  Transmission Date: 20140515
  Serious: Yes (Other)
  Sender: FDA-Public Use
  Company Number: US-SANOFI-AVENTIS-2013SA089308

PATIENT
  Age: 58 Year
  Sex: Female

DRUGS (1)
  1. ALLEGRA [Suspect]
     Indication: HYPERSENSITIVITY
     Dosage: DOSE - 180MG DAILY IF NEEDED
     Route: 065

REACTIONS (1)
  - Myocardial infarction [Recovered/Resolved]
